FAERS Safety Report 15718013 (Version 1)
Quarter: 2018Q4

REPORT INFORMATION
  Report Type: Spontaneous
  Country: US (occurrence: US)
  Receive Date: 20181129
  Receipt Date: 20181129
  Transmission Date: 20190205
  Serious: Yes (Hospitalization)
  Sender: FDA-Public Use
  Company Number: None

PATIENT
  Age: 60 Year
  Sex: Female
  Weight: 54.1 kg

DRUGS (9)
  1. CIPROFLOXACIN 750MG [Suspect]
     Active Substance: CIPROFLOXACIN
     Indication: DRY GANGRENE
     Route: 048
     Dates: start: 20180511, end: 20180521
  2. CIPROFLOXACIN 750 MILLIGRAMS TWICE DAILY [Concomitant]
  3. CREON L TABLET THREE TIMES DAILY WITH MEALS [Concomitant]
  4. LISINOPRIL 20 MILLIGRAMS DAILY [Concomitant]
  5. TRAMADOL 50 MILLIGRAMS EVERY 6 HOURS AS NEEDED FOR PAIN [Concomitant]
  6. AMLODIPINE 10 MILLIGRAMS DAILY, [Concomitant]
  7. VANCOMYCIN 1250MG [Suspect]
     Active Substance: VANCOMYCIN
     Indication: DRY GANGRENE
     Route: 042
     Dates: start: 20180511, end: 20180521
  8. VANCOMYCIN 1250-MILLIGRAMS [Concomitant]
  9. GABAPENTIN 300 MILLIGRAMS THREE TIMES A DAY [Concomitant]

REACTIONS (2)
  - Acute kidney injury [None]
  - Tubulointerstitial nephritis [None]

NARRATIVE: CASE EVENT DATE: 20180521
